FAERS Safety Report 7190427-X (Version None)
Quarter: 2010Q4

REPORT INFORMATION
  Report Type: 
  Country: None (occurrence: None)
  Receive Date: 20101223
  Receipt Date: 20101214
  Transmission Date: 20110411
  Serious: Yes (Hospitalization)
  Sender: FDA-Public Use
  Company Number: CA-ELI_LILLY_AND_COMPANY-CA201012000911

PATIENT
  Sex: Female

DRUGS (2)
  1. HUMALOG MIX 75/25 [Suspect]
     Dosage: 32 U, EACH MORNING
  2. HUMALOG MIX 75/25 [Suspect]
     Dosage: 18 U, EACH EVENING

REACTIONS (2)
  - APPENDICECTOMY [None]
  - DRUG ADMINISTRATION ERROR [None]
